FAERS Safety Report 21075145 (Version 1)
Quarter: 2022Q3

REPORT INFORMATION
  Report Type: Spontaneous
  Country: US (occurrence: US)
  Receive Date: 20220713
  Receipt Date: 20220713
  Transmission Date: 20221027
  Serious: Yes (Other)
  Sender: FDA-Public Use
  Company Number: US-BAYER-2022A093371

PATIENT
  Age: 40 Year
  Sex: Female

DRUGS (1)
  1. ALKA-SELTZER PLUS COLD AND COUGH [Suspect]
     Active Substance: ACETAMINOPHEN\CHLORPHENIRAMINE\DEXTROMETHORPHAN\PHENYLEPHRINE
     Indication: Pyrexia
     Dosage: 2 DF
     Dates: start: 20220703, end: 20220705

REACTIONS (3)
  - Rash pruritic [Not Recovered/Not Resolved]
  - Eye swelling [Not Recovered/Not Resolved]
  - Lymphadenopathy [Not Recovered/Not Resolved]

NARRATIVE: CASE EVENT DATE: 20220703
